FAERS Safety Report 5015153-4 (Version None)
Quarter: 2006Q2

REPORT INFORMATION
  Report Type: 
  Country: None (occurrence: None)
  Receive Date: 20060530
  Receipt Date: 20060522
  Transmission Date: 20061013
  Serious: Yes (Other)
  Sender: FDA-Public Use
  Company Number: 2006066446

PATIENT
  Age: 51 Year
  Sex: Female

DRUGS (5)
  1. MINOXIDIL [Suspect]
     Indication: FEMALE PATTERN BALDNESS
     Dosage: 1 ML TWO TIMES A DAY, TOPICAL
     Route: 061
     Dates: start: 20051001, end: 20060301
  2. PREDNISOLONE [Concomitant]
  3. TROXIPIDE (TROXIPIDE) [Concomitant]
  4. CANDESARTAN CILEXETIL (CANDESARTAN CILEXETIL) [Concomitant]
  5. DILAZEP DIHYDROCHLORIDE (DILAZEP DIHYDROCHLORIDE) [Concomitant]

REACTIONS (2)
  - BLOOD URINE PRESENT [None]
  - PROTEIN URINE PRESENT [None]
